FAERS Safety Report 13882273 (Version 1)
Quarter: 2017Q3

REPORT INFORMATION
  Report Type: Spontaneous
  Country: JP (occurrence: JP)
  Receive Date: 20170818
  Receipt Date: 20170818
  Transmission Date: 20171127
  Serious: Yes (Other)
  Sender: FDA-Public Use
  Company Number: JP-FRESENIUS KABI-FK201707067

PATIENT
  Age: 44 Year
  Sex: Male

DRUGS (5)
  1. NICARDIPINE [Concomitant]
     Active Substance: NICARDIPINE
     Indication: PRODUCT USED FOR UNKNOWN INDICATION
  2. FENTANYL (MANUFACTURER UNKNOWN) [Interacting]
     Active Substance: FENTANYL
     Indication: ANAESTHESIA
     Route: 065
  3. NITROGLYCERIN. [Concomitant]
     Active Substance: NITROGLYCERIN
     Indication: PRODUCT USED FOR UNKNOWN INDICATION
  4. PROPOFOL (MANUFACTURER UNKNOWN) [Suspect]
     Active Substance: PROPOFOL
     Indication: ANAESTHESIA
     Route: 065
  5. REMIFENTANIL (MANUFACTURER UNKNOWN) [Interacting]
     Active Substance: REMIFENTANIL
     Indication: ANAESTHESIA
     Route: 065

REACTIONS (3)
  - Trigemino-cardiac reflex [Recovered/Resolved]
  - Drug interaction [Recovered/Resolved]
  - Sinus arrest [Recovered/Resolved]
